FAERS Safety Report 5365485-5 (Version None)
Quarter: 2007Q2

REPORT INFORMATION
  Report Type: 
  Country: None (occurrence: None)
  Receive Date: 20070530
  Receipt Date: 20070127
  Transmission Date: 20071010
  Serious: No
  Sender: FDA-Public Use
  Company Number: 2007PV029148

PATIENT
  Age: 66 Year
  Sex: Male
  Weight: 101.3789 kg

DRUGS (7)
  1. BYETTA [Suspect]
     Indication: DIABETES MELLITUS NON-INSULIN-DEPENDENT
     Dosage: 5 MCG;BID;SC
     Route: 058
     Dates: start: 20070111
  2. LANTUS [Concomitant]
  3. GLYBURIDE [Concomitant]
  4. ISOSORBIDE DINITRATE [Concomitant]
  5. HYDRALAZINE HCL [Concomitant]
  6. COREG [Concomitant]
  7. FUROSEMIDE [Concomitant]

REACTIONS (5)
  - BLOOD GLUCOSE DECREASED [None]
  - DECREASED APPETITE [None]
  - HYPOTENSION [None]
  - NEUROPATHY [None]
  - PARAESTHESIA [None]
